FAERS Safety Report 24882884 (Version 1)
Quarter: 2025Q1

REPORT INFORMATION
  Report Type: Report from Study
  Country: US (occurrence: US)
  Receive Date: 20250124
  Receipt Date: 20250124
  Transmission Date: 20250409
  Serious: Yes (Hospitalization)
  Sender: RECORDATI
  Company Number: US-RECORDATI RARE DISEASE INC.-2025000310

PATIENT

DRUGS (2)
  1. CARBAGLU [Suspect]
     Active Substance: CARGLUMIC ACID
     Indication: Methylmalonic acidaemia
     Dosage: 200 MG, TID (THREE 200 MG TABLETS IN 2.5 ML OF WATER PER TABLET AND INGESTED BY MOUTH)
     Route: 048
     Dates: start: 202501, end: 202501
  2. CARBAGLU [Suspect]
     Active Substance: CARGLUMIC ACID
     Dosage: 200 MG, TID (THREE 200 MG TABLETS IN 2.5 ML OF WATER PER TABLET) (PATIENT WAS TAKING PG TO TAKE MEDI
     Dates: start: 202501

REACTIONS (1)
  - Ammonia increased [Unknown]

NARRATIVE: CASE EVENT DATE: 20250101
